FAERS Safety Report 15395796 (Version 2)
Quarter: 2018Q3

REPORT INFORMATION
  Report Type: Spontaneous
  Country: TR (occurrence: TR)
  Receive Date: 20180918
  Receipt Date: 20180918
  Transmission Date: 20181010
  Serious: Yes (Hospitalization, Other)
  Sender: FDA-Public Use
  Company Number: TR-ENDO PHARMACEUTICALS INC-2018-041103

PATIENT
  Age: 25 Year
  Sex: Male
  Weight: 70 kg

DRUGS (2)
  1. AVEED [Suspect]
     Active Substance: TESTOSTERONE UNDECANOATE
     Indication: SECONDARY HYPOGONADISM
     Dosage: 250 UNITS, ONCE EVERY 3 WEEKS
     Route: 065
  2. HUMAN CHORIONIC GONADOTROPIN [Suspect]
     Active Substance: GONADOTROPHIN, CHORIONIC
     Indication: SECONDARY HYPOGONADISM
     Dosage: 1500 UNITS, THREE TIMES A WEEK
     Route: 065

REACTIONS (4)
  - Off label use [Unknown]
  - Bipolar I disorder [Recovered/Resolved]
  - Hypomania [Recovered/Resolved]
  - Treatment noncompliance [Unknown]
